FAERS Safety Report 15835978 (Version 1)
Quarter: 2019Q1

REPORT INFORMATION
  Report Type: Spontaneous
  Country: IT (occurrence: IT)
  Receive Date: 20190117
  Receipt Date: 20190117
  Transmission Date: 20190417
  Serious: Yes (Other)
  Sender: FDA-Public Use
  Company Number: IT-EMD SERONO-E2B_90054205

PATIENT
  Age: 38 Year
  Sex: Male

DRUGS (1)
  1. REBIF [Suspect]
     Active Substance: INTERFERON BETA-1A
     Indication: MULTIPLE SCLEROSIS
     Dosage: SOLUTION FOR INJECTION IN PRE-FILLED SYRINGE, TIME INTERVAL: CYCLICAL
     Route: 058
     Dates: start: 20111201, end: 20180709

REACTIONS (9)
  - Speech disorder [Unknown]
  - Nausea [Unknown]
  - Asthenia [Unknown]
  - Vomiting [Unknown]
  - Haemolytic uraemic syndrome [Unknown]
  - Abdominal pain upper [Unknown]
  - Visual impairment [Unknown]
  - Confusional state [Unknown]
  - Pyrexia [Unknown]

NARRATIVE: CASE EVENT DATE: 20180628
